FAERS Safety Report 8376336-9 (Version None)
Quarter: 2012Q2

REPORT INFORMATION
  Report Type: 
  Country: None (occurrence: None)
  Receive Date: 20120518
  Receipt Date: 20120507
  Transmission Date: 20120825
  Serious: Yes (Hospitalization, Other)
  Sender: FDA-Public Use
  Company Number: 2011IT0400

PATIENT
  Sex: Female

DRUGS (1)
  1. ORFADIN [Suspect]
     Indication: TYROSINAEMIA
     Dosage: 44 MG (44 MG, 1 IN 1 D)
     Dates: start: 19910315

REACTIONS (3)
  - HEPATIC FUNCTION ABNORMAL [None]
  - AMINO ACID LEVEL INCREASED [None]
  - LIVER TRANSPLANT [None]
